FAERS Safety Report 7956066-5 (Version None)
Quarter: 2011Q4

REPORT INFORMATION
  Report Type: 
  Country: None (occurrence: None)
  Receive Date: 20111205
  Receipt Date: 20111128
  Transmission Date: 20120403
  Serious: No
  Sender: FDA-Public Use
  Company Number: US-PFIZER INC-2011290868

PATIENT
  Sex: Male

DRUGS (3)
  1. VIAGRA [Suspect]
     Dosage: 100 MG, UNK
  2. VIAGRA [Suspect]
     Dosage: 50 MG, UNK
  3. VIAGRA [Suspect]
     Dosage: 25 MG, UNK

REACTIONS (1)
  - DRUG INEFFECTIVE [None]
